FAERS Safety Report 8772437 (Version 2)
Quarter: 2012Q4

REPORT INFORMATION
  Report Type: 
  Country: US (occurrence: US)
  Receive Date: 20120905
  Receipt Date: 20121023
  Transmission Date: 20130627
  Serious: Yes (Other)
  Sender: FDA-Public Use
  Company Number: US-FRI-1000038306

PATIENT
  Sex: Male

DRUGS (12)
  1. VIIBRYD [Suspect]
     Indication: DEPRESSION
     Dosage: 10 mg
     Route: 048
     Dates: start: 20120110, end: 20120116
  2. VIIBRYD [Suspect]
     Dosage: 20 mg
     Route: 048
     Dates: start: 20120117, end: 20120123
  3. VIIBRYD [Suspect]
     Indication: DEPRESSION
     Dosage: 40 mg
     Route: 048
     Dates: start: 20120724, end: 201207
  4. VIIBRYD [Suspect]
     Dosage: 20 mg
     Route: 048
     Dates: start: 201207, end: 20120823
  5. VIIBRYD [Suspect]
     Dosage: 10 mg
     Route: 048
     Dates: start: 20120824, end: 20120831
  6. SIMVASTATIN [Concomitant]
     Indication: BLOOD CHOLESTEROL INCREASED
     Dosage: 20 mg
     Route: 048
     Dates: start: 20111031
  7. SLO-NIACIN [Concomitant]
     Indication: BLOOD TRIGLYCERIDES INCREASED
     Dosage: 250 mg
     Route: 048
     Dates: start: 20111031
  8. ALBUTEROL [Concomitant]
     Indication: BRONCHITIS
  9. DULERA [Concomitant]
     Indication: BRONCHITIS
  10. AMBIEN [Concomitant]
     Dosage: 5 mg
     Route: 048
     Dates: start: 20120112
  11. CIALIS [Concomitant]
     Dosage: 10 mg
     Route: 048
     Dates: start: 20120112
  12. MULTIVITAMINS [Concomitant]

REACTIONS (14)
  - Supraventricular extrasystoles [Recovered/Resolved]
  - Ventricular extrasystoles [Recovered/Resolved]
  - Anxiety [Recovered/Resolved]
  - Delirium [Recovered/Resolved]
  - Palpitations [Recovered/Resolved]
  - Blood pressure increased [Recovered/Resolved]
  - Peptic ulcer [Recovering/Resolving]
  - Urinary tract infection [Recovered/Resolved]
  - Visual acuity reduced [Not Recovered/Not Resolved]
  - Hot flush [Recovered/Resolved]
  - Thinking abnormal [Recovered/Resolved]
  - Irritability [Recovered/Resolved]
  - Nausea [Recovered/Resolved]
  - Dizziness [Recovered/Resolved]
